FAERS Safety Report 17553557 (Version 1)
Quarter: 2020Q1

REPORT INFORMATION
  Report Type: Report from Study
  Country: None (occurrence: US)
  Receive Date: 20200318
  Receipt Date: 20200318
  Transmission Date: 20200409
  Serious: Yes (Other)
  Sender: FDA-Public Use
  Company Number: US-ABBVIE-20K-163-3322273-00

PATIENT
  Sex: Female

DRUGS (2)
  1. HUMIRA [Suspect]
     Active Substance: ADALIMUMAB
     Indication: PSORIASIS
     Dosage: CITRATE FREE
     Route: 058
  2. HUMIRA [Suspect]
     Active Substance: ADALIMUMAB
     Indication: COLITIS ULCERATIVE

REACTIONS (9)
  - Back pain [Recovering/Resolving]
  - Muscle spasms [Recovering/Resolving]
  - Spinal pain [Unknown]
  - Headache [Unknown]
  - Urinary tract infection [Unknown]
  - Neck pain [Unknown]
  - Nausea [Unknown]
  - Hepatic cirrhosis [Recovering/Resolving]
  - Glucose tolerance impaired [Unknown]
